FAERS Safety Report 13128051 (Version 2)
Quarter: 2017Q1

REPORT INFORMATION
  Report Type: Spontaneous
  Country: SE (occurrence: SE)
  Receive Date: 20170118
  Receipt Date: 20170227
  Transmission Date: 20170428
  Serious: Yes (Other)
  Sender: FDA-Public Use
  Company Number: PHHY2017SE005636

PATIENT
  Sex: Male

DRUGS (1)
  1. COSENTYX [Suspect]
     Active Substance: SECUKINUMAB
     Indication: PSORIASIS
     Dosage: QMO
     Route: 058
     Dates: start: 201605

REACTIONS (2)
  - Pigmentation disorder [Unknown]
  - Spitzoid melanoma [Recovered/Resolved with Sequelae]

NARRATIVE: CASE EVENT DATE: 20161019
